FAERS Safety Report 9799383 (Version 2)
Quarter: 2014Q1

REPORT INFORMATION
  Report Type: Report from Study
  Country: US (occurrence: US)
  Receive Date: 20140106
  Receipt Date: 20140214
  Transmission Date: 20141002
  Serious: Yes (Death, Hospitalization, Other)
  Sender: FDA-Public Use
  Company Number: US-ACTELION-A-NJ2013-92946

PATIENT
  Age: 72 Year
  Sex: Male

DRUGS (10)
  1. VELETRI [Suspect]
     Indication: PULMONARY ARTERIAL HYPERTENSION
     Dosage: 14 NG/KG, PER MIN
     Route: 042
     Dates: start: 20130930
  2. ADCIRCA [Concomitant]
     Dosage: 40 MG, QD
  3. COUMADIN [Concomitant]
     Dosage: 5 MG, QD
  4. SPIRONOLACTONE [Concomitant]
     Dosage: 25 MG, QD
  5. ASA [Concomitant]
     Dosage: 81 MG, UNK
  6. ADVAIR [Concomitant]
     Dosage: 1 PUFF, BID
  7. SPIRIVA [Concomitant]
     Dosage: 18 UNK, UNK
  8. ALBUTEROL [Concomitant]
     Dosage: 2 PUFF, QID
  9. ZOFRAN [Concomitant]
     Dosage: 4 MG, TID
  10. TORSEMIDE [Concomitant]
     Dosage: 40 UNK, UNK

REACTIONS (15)
  - Pulmonary arterial hypertension [Fatal]
  - Right ventricular failure [Unknown]
  - Fluid overload [Unknown]
  - Hypoxia [Unknown]
  - Ascites [Unknown]
  - Hepatic congestion [Unknown]
  - Oedema [Unknown]
  - Abdominal distension [Unknown]
  - Acute respiratory failure [Unknown]
  - Oxygen saturation decreased [Unknown]
  - Mental status changes [Unknown]
  - Pulmonary oedema [Unknown]
  - Atrial fibrillation [Unknown]
  - Renal impairment [Unknown]
  - Pain in jaw [Unknown]
